FAERS Safety Report 6722783-8 (Version None)
Quarter: 2010Q2

REPORT INFORMATION
  Report Type: 
  Country: None (occurrence: None)
  Receive Date: 20100511
  Receipt Date: 20100129
  Transmission Date: 20101027
  Serious: Yes (Death, Hospitalization)
  Sender: FDA-Public Use
  Company Number: 503767

PATIENT
  Age: 48 Year
  Sex: Female
  Weight: 71.8 kg

DRUGS (2)
  1. CARBOPLATIN [Suspect]
     Indication: NON-SMALL CELL LUNG CANCER STAGE IIIA
     Dosage: 655 MG, INTRAVENOUS
     Route: 042
     Dates: start: 20080414, end: 20080602
  2. VINORELBINE TARTRATE [Suspect]
     Indication: NON-SMALL CELL LUNG CANCER STAGE IIIA
     Dosage: 25 MG/M2, INTRAVENOUS; 60 MG/M2 ORAL
     Dates: start: 20080414, end: 20080609

REACTIONS (10)
  - ATELECTASIS [None]
  - DIARRHOEA [None]
  - HYPOTENSION [None]
  - LUNG CONSOLIDATION [None]
  - MALIGNANT NEOPLASM PROGRESSION [None]
  - NEUTROPENIC SEPSIS [None]
  - NON-SMALL CELL LUNG CANCER STAGE IIIA [None]
  - PLEURAL EFFUSION [None]
  - RENAL FAILURE [None]
  - RESPIRATORY FAILURE [None]
